FAERS Safety Report 15295888 (Version 1)
Quarter: 2018Q3

REPORT INFORMATION
  Report Type: Report from Study
  Country: AR (occurrence: AR)
  Receive Date: 20180820
  Receipt Date: 20180820
  Transmission Date: 20181010
  Serious: Yes (Hospitalization, Other)
  Sender: FDA-Public Use
  Company Number: PHHY2014AR155720

PATIENT
  Age: 60 Year
  Sex: Female

DRUGS (2)
  1. GILENYA [Suspect]
     Active Substance: FINGOLIMOD HYDROCHLORIDE
     Indication: MULTIPLE SCLEROSIS
     Dosage: 0.5 MG, QD
     Route: 048
     Dates: start: 201401
  2. TEGRETOL [Suspect]
     Active Substance: CARBAMAZEPINE
     Indication: MULTIPLE SCLEROSIS
     Dosage: 400 UKN, QD
     Route: 065
     Dates: start: 2013

REACTIONS (13)
  - Hemiparesis [Recovering/Resolving]
  - Fall [Unknown]
  - Nausea [Recovering/Resolving]
  - Fracture [Unknown]
  - Gait inability [Recovering/Resolving]
  - Joint injury [Unknown]
  - Nervousness [Recovering/Resolving]
  - Product use in unapproved indication [Unknown]
  - General physical health deterioration [Recovering/Resolving]
  - Malaise [Unknown]
  - Gait disturbance [Unknown]
  - Depression [Unknown]
  - Blood pressure increased [Recovered/Resolved]

NARRATIVE: CASE EVENT DATE: 201405
